FAERS Safety Report 8789249 (Version 1)
Quarter: 2012Q4

REPORT INFORMATION
  Report Type: Spontaneous
  Country: US (occurrence: None)
  Receive Date: 20120910
  Receipt Date: 20120910
  Transmission Date: 20130627
  Serious: Yes (Life-Threatening)
  Sender: FDA-Public Use
  Company Number: None

PATIENT
  Age: 83 Year
  Sex: Female
  Weight: 45 kg

DRUGS (1)
  1. PRADAXA [Suspect]

REACTIONS (8)
  - Syncope [None]
  - Asthenia [None]
  - Fatigue [None]
  - Dizziness [None]
  - Nausea [None]
  - Chills [None]
  - Haemorrhage [None]
  - Melaena [None]
